FAERS Safety Report 4317911-8 (Version None)
Quarter: 2004Q1

REPORT INFORMATION
  Report Type: 
  Country: None (occurrence: None)
  Receive Date: 20040316
  Receipt Date: 20040225
  Transmission Date: 20041129
  Serious: Yes (Hospitalization, Disabling)
  Sender: FDA-Public Use
  Company Number: JP-ROCHE-359765

PATIENT
  Age: 44 Year
  Sex: Female
  Weight: 43 kg

DRUGS (3)
  1. XELODA [Suspect]
     Indication: BREAST CANCER
     Dosage: DOSE REPORTED AS 2400 MG X2.
     Route: 048
     Dates: start: 20030627, end: 20040225
  2. XELODA [Suspect]
     Route: 048
     Dates: start: 20040301
  3. IRSOGLADINE [Concomitant]
     Indication: PROPHYLAXIS
     Route: 048
     Dates: start: 20030627

REACTIONS (4)
  - CONVULSION [None]
  - DISCOMFORT [None]
  - LOSS OF CONSCIOUSNESS [None]
  - PALMAR-PLANTAR ERYTHRODYSAESTHESIA SYNDROME [None]
